FAERS Safety Report 17106702 (Version 2)
Quarter: 2020Q1

REPORT INFORMATION
  Report Type: Report from Study
  Country: US (occurrence: US)
  Receive Date: 20191203
  Receipt Date: 20200319
  Transmission Date: 20200409
  Serious: Yes (Hospitalization)
  Sender: FDA-Public Use
  Company Number: US-BIOGEN-2019BI00810055

PATIENT
  Sex: Female
  Weight: 69.92 kg

DRUGS (3)
  1. TECFIDERA [Suspect]
     Active Substance: DIMETHYL FUMARATE
     Route: 048
     Dates: start: 20190315
  2. CORTISONE [Concomitant]
     Active Substance: CORTISONE
     Indication: ARTHROPATHY
     Route: 065
  3. TECFIDERA [Suspect]
     Active Substance: DIMETHYL FUMARATE
     Indication: MULTIPLE SCLEROSIS
     Route: 048
     Dates: start: 20190303

REACTIONS (4)
  - Pain [Unknown]
  - Arthralgia [Unknown]
  - Joint noise [Unknown]
  - Gait disturbance [Unknown]
